FAERS Safety Report 5303055-5 (Version None)
Quarter: 2007Q1

REPORT INFORMATION
  Report Type: 
  Country: None (occurrence: None)
  Receive Date: 20070201
  Receipt Date: 20061121
  Transmission Date: 20070707
  Serious: No
  Sender: FDA-Public Use
  Company Number: 2006PV025709

PATIENT
  Age: 53 Year
  Sex: Male
  Weight: 73.4827 kg

DRUGS (4)
  1. BYETTA [Suspect]
     Indication: DIABETES MELLITUS NON-INSULIN-DEPENDENT
     Dosage: SEE IMAGE
     Route: 058
     Dates: start: 20061101, end: 20061201
  2. BYETTA [Suspect]
     Indication: DIABETES MELLITUS NON-INSULIN-DEPENDENT
     Dosage: SEE IMAGE
     Route: 058
     Dates: start: 20061201
  3. ACTOS [Concomitant]
  4. AMARYL [Concomitant]

REACTIONS (4)
  - INJECTION SITE DISCOMFORT [None]
  - NAUSEA [None]
  - VOMITING [None]
  - WEIGHT DECREASED [None]
